FAERS Safety Report 4915968-4 (Version None)
Quarter: 2006Q1

REPORT INFORMATION
  Report Type: 
  Country: None (occurrence: None)
  Receive Date: 20060214
  Receipt Date: 20060130
  Transmission Date: 20060701
  Serious: Yes (Other)
  Sender: FDA-Public Use
  Company Number: US200511003110

PATIENT
  Sex: Male

DRUGS (4)
  1. CYMBALTA [Suspect]
     Indication: MIGRAINE
     Dosage: 90 + 60 MG
     Dates: start: 20051101, end: 20051101
  2. CYMBALTA [Suspect]
     Indication: MIGRAINE
     Dosage: 90 + 60 MG
     Dates: start: 20051101, end: 20051101
  3. ATENOLOL (ATNOLOL0 [Concomitant]
  4. LISINOPRIL [Concomitant]

REACTIONS (1)
  - BLOOD PRESSURE INCREASED [None]
